FAERS Safety Report 21298821 (Version 1)
Quarter: 2022Q3

REPORT INFORMATION
  Report Type: Spontaneous
  Country: CN (occurrence: CN)
  Receive Date: 20220906
  Receipt Date: 20220906
  Transmission Date: 20221027
  Serious: Yes (Life-Threatening, Other)
  Sender: FDA-Public Use
  Company Number: CN-PFIZER INC-PV202200056812

PATIENT
  Age: 55 Year
  Sex: Male
  Weight: 84 kg

DRUGS (3)
  1. EPIRUBICIN [Suspect]
     Active Substance: EPIRUBICIN
     Indication: Breast cancer male
     Dosage: 200 MG, 1X/DAY
     Route: 041
     Dates: start: 20220804, end: 20220804
  2. CYCLOPHOSPHAMIDE [Suspect]
     Active Substance: CYCLOPHOSPHAMIDE
     Indication: Breast cancer male
     Dosage: 1200 MG, 1X/DAY
     Route: 041
     Dates: start: 20220804, end: 20220804
  3. MECAPEGFILGRASTIM [Suspect]
     Active Substance: MECAPEGFILGRASTIM
     Indication: Breast cancer male
     Dosage: 6 MG
     Route: 058
     Dates: start: 20220806

REACTIONS (3)
  - Myelosuppression [Recovering/Resolving]
  - Pyrexia [Recovering/Resolving]
  - Diarrhoea [Recovering/Resolving]

NARRATIVE: CASE EVENT DATE: 20220811
